FAERS Safety Report 13318299 (Version 1)
Quarter: 2017Q1

REPORT INFORMATION
  Report Type: Spontaneous
  Country: US (occurrence: US)
  Receive Date: 20170308
  Receipt Date: 20170308
  Transmission Date: 20170428
  Serious: No
  Sender: FDA-Public Use
  Company Number: US-AMGEN-USASP2016088615

PATIENT
  Age: 90 Year
  Sex: Female

DRUGS (1)
  1. SENSIPAR [Suspect]
     Active Substance: CINACALCET HYDROCHLORIDE
     Indication: PARATHYROID DISORDER
     Dosage: UNK, QOD
     Route: 048

REACTIONS (3)
  - Off label use [Unknown]
  - Memory impairment [Unknown]
  - Intentional product misuse [Unknown]
